FAERS Safety Report 8953864 (Version 2)
Quarter: 2012Q4

REPORT INFORMATION
  Report Type: 
  Country: US (occurrence: US)
  Receive Date: 20121206
  Receipt Date: 20121213
  Transmission Date: 20130627
  Serious: Yes (Life-Threatening, Hospitalization, Other)
  Sender: FDA-Public Use
  Company Number: CHPA2012US024737

PATIENT
  Age: 74 Year
  Sex: Female

DRUGS (3)
  1. VOLTAREN GEL [Suspect]
     Indication: PAIN
     Dosage: UNK, four times a day
     Route: 061
     Dates: start: 2009, end: 2009
  2. DRUG THERAPY NOS [Suspect]
     Dosage: Unk, Unk
     Route: 065
  3. ANALGESICS [Concomitant]
     Indication: PAIN

REACTIONS (6)
  - Hypersensitivity [Recovered/Resolved]
  - Pneumonia [Recovered/Resolved]
  - Large intestine polyp [Recovered/Resolved]
  - Memory impairment [Recovered/Resolved]
  - Hypersomnia [Recovered/Resolved]
  - Drug ineffective for unapproved indication [Unknown]
